FAERS Safety Report 20475574 (Version 1)
Quarter: 2022Q1

REPORT INFORMATION
  Report Type: Report from Study
  Country: US (occurrence: US)
  Receive Date: 20220215
  Receipt Date: 20220215
  Transmission Date: 20220424
  Serious: Yes (Hospitalization, Other)
  Sender: FDA-Public Use
  Company Number: US-BAUSCH-BL-2022-004225

PATIENT
  Age: 57 Year
  Sex: Female
  Weight: 98.4 kg

DRUGS (15)
  1. XIFAXAN [Suspect]
     Active Substance: RIFAXIMIN
     Indication: Product used for unknown indication
     Route: 048
  2. ATIVAN [Suspect]
     Active Substance: LORAZEPAM
     Indication: Depression
     Dosage: 0.5-1 MG DRUG HELD
     Route: 048
     Dates: start: 20211108, end: 20220206
  3. LACTULOSE [Concomitant]
     Active Substance: LACTULOSE
     Indication: Product used for unknown indication
     Dosage: 10 GM/15 ML
     Route: 048
  4. CARVEDILOL [Concomitant]
     Active Substance: CARVEDILOL
     Indication: Product used for unknown indication
     Dosage: UNTILL 07/MAY/2022
     Route: 048
     Dates: start: 20211108
  5. DOCUSATE SODIUM [Concomitant]
     Active Substance: DOCUSATE SODIUM
     Indication: Product used for unknown indication
     Route: 048
  6. DOXERCALCIFEROL [Concomitant]
     Active Substance: DOXERCALCIFEROL
     Indication: Dialysis
     Dosage: 4 MCG/ 2 ML, MON, WED, FRI IN DIALYSIS
     Route: 065
  7. EPOETIN ALFA [Concomitant]
     Active Substance: ERYTHROPOIETIN
     Indication: Dialysis
     Dosage: 20000 UNIT/ML, MON, WED, FRI IN DIALYSIS
     Route: 065
  8. MEGESTROL [Concomitant]
     Active Substance: MEGESTROL
     Indication: Product used for unknown indication
     Route: 048
     Dates: start: 20211103
  9. MELATONIN [Concomitant]
     Active Substance: MELATONIN
     Indication: Product used for unknown indication
     Route: 048
  10. OMEPRAZOLE [Concomitant]
     Active Substance: OMEPRAZOLE
     Indication: Product used for unknown indication
     Route: 048
     Dates: start: 20210928
  11. POLYETHYLENE GLYCOLS [Concomitant]
     Active Substance: POLYETHYLENE GLYCOLS
     Indication: Product used for unknown indication
     Dosage: WITH DINNER
     Route: 048
  12. IRON SUCROSE [Concomitant]
     Active Substance: IRON SUCROSE
     Indication: Dialysis
     Dosage: 20 MG/ML, MON, WED, FRI IN DIALYSIS
     Route: 065
  13. ESCITALOPRAM [Concomitant]
     Active Substance: ESCITALOPRAM OXALATE
     Indication: Depression
     Dosage: DAILY?UNTILL 02/MAY/2022
     Route: 048
     Dates: start: 20210502
  14. LEVOTHYROXINE [Concomitant]
     Active Substance: LEVOTHYROXINE
     Indication: Product used for unknown indication
     Dosage: BEFORE BREAKFAST, HOLD TUBE FEEDS AN HR BEFORE AND AFTER ADMINISTRATION?UNTILL 16/FEB/2022
     Route: 048
     Dates: start: 20210216
  15. MIRTAZAPINE [Concomitant]
     Active Substance: MIRTAZAPINE
     Indication: Depression
     Dosage: UNTILL 05/MAY/2022
     Route: 048
     Dates: start: 20210502

REACTIONS (8)
  - Metabolic encephalopathy [Recovered/Resolved]
  - Multiple organ dysfunction syndrome [Recovered/Resolved]
  - Condition aggravated [Recovered/Resolved]
  - Coma [Recovered/Resolved]
  - Hepatic encephalopathy [Recovered/Resolved]
  - Anaemia [Recovered/Resolved]
  - Insurance issue [Unknown]
  - Inability to afford medication [Unknown]

NARRATIVE: CASE EVENT DATE: 20220101
